FAERS Safety Report 17781377 (Version 1)
Quarter: 2020Q2

REPORT INFORMATION
  Report Type: Spontaneous
  Country: US (occurrence: US)
  Receive Date: 20200513
  Receipt Date: 20200513
  Transmission Date: 20200714
  Serious: No
  Sender: FDA-Public Use
  Company Number: US-TOLMAR, INC.-20US020113

PATIENT
  Age: 85 Year
  Sex: Female

DRUGS (1)
  1. NAFTIFINE HYDROCHLORIDE. [Suspect]
     Active Substance: NAFTIFINE HYDROCHLORIDE
     Indication: ONYCHOMYCOSIS
     Dosage: UNK, BID (MORNING AND EVENING)
     Route: 061
     Dates: start: 20181217, end: 201912

REACTIONS (1)
  - Drug ineffective [Not Recovered/Not Resolved]

NARRATIVE: CASE EVENT DATE: 201912
